FAERS Safety Report 10885205 (Version 1)
Quarter: 2015Q1

REPORT INFORMATION
  Report Type: Spontaneous
  Country: JP (occurrence: JP)
  Receive Date: 20150304
  Receipt Date: 20150304
  Transmission Date: 20150721
  Serious: Yes (Other)
  Sender: FDA-Public Use
  Company Number: JP-SA-2014SA105016

PATIENT
  Age: 41 Year
  Sex: Female
  Weight: 102 kg

DRUGS (19)
  1. DOGMATYL [Suspect]
     Active Substance: SULPIRIDE
     Indication: GASTROOESOPHAGEAL REFLUX DISEASE
     Route: 048
     Dates: start: 20140212, end: 20140401
  2. BLOPRESS [Concomitant]
     Active Substance: CANDESARTAN CILEXETIL
     Dates: start: 20131106, end: 20140528
  3. HALCION [Concomitant]
     Active Substance: TRIAZOLAM
     Dates: start: 20131106, end: 20140115
  4. ROHYPNOL [Concomitant]
     Active Substance: FLUNITRAZEPAM
     Dates: start: 20131106, end: 20140528
  5. WYPAX [Concomitant]
     Active Substance: LORAZEPAM
     Dates: start: 20131106, end: 20140430
  6. FLOMOX [Concomitant]
     Active Substance: CEFCAPENE PIVOXIL HYDROCHLORIDE HYDRATE
     Dates: start: 20140220, end: 20140227
  7. NORVASC [Concomitant]
     Active Substance: AMLODIPINE BESYLATE
     Dates: start: 20140326, end: 20140528
  8. KAMISHOYOSAN [Concomitant]
     Dates: start: 20140604, end: 20140618
  9. PARACETAMOL/CAFFEINE/SALICYLAMIDE/PROMETHAZINE METHYLENE DISALICYLATE [Concomitant]
     Dates: start: 20140220, end: 20140227
  10. LASIX [Concomitant]
     Active Substance: FUROSEMIDE
     Dates: start: 20140409, end: 20140625
  11. MYSLEE [Suspect]
     Active Substance: ZOLPIDEM TARTRATE
     Indication: SLEEP DISORDER
     Route: 048
     Dates: start: 20131218, end: 20140813
  12. PRIMPERAN [Suspect]
     Active Substance: METOCLOPRAMIDE HYDROCHLORIDE
     Indication: GASTROOESOPHAGEAL REFLUX DISEASE
     Route: 048
     Dates: start: 20131106, end: 20140115
  13. SEROQUEL [Suspect]
     Active Substance: QUETIAPINE FUMARATE
     Indication: BIPOLAR I DISORDER
     Route: 048
     Dates: start: 20140324, end: 20140324
  14. ABILIFY [Concomitant]
     Active Substance: ARIPIPRAZOLE
     Dates: start: 20131106, end: 20140312
  15. JZOLOFT [Concomitant]
     Active Substance: SERTRALINE HYDROCHLORIDE
     Dates: start: 20131106, end: 20140115
  16. RISPERDAL [Concomitant]
     Active Substance: RISPERIDONE
     Dates: start: 20140326, end: 20140416
  17. BROTIZOLAM [Concomitant]
     Active Substance: BROTIZOLAM
     Dosage: FORM:  ORODISPERSIBLE TABLET
     Dates: start: 20140312, end: 20140513
  18. LAMICTAL [Concomitant]
     Active Substance: LAMOTRIGINE
     Dates: start: 20140312, end: 20140528
  19. ROZEREM [Concomitant]
     Active Substance: RAMELTEON
     Dates: start: 20140709, end: 20140719

REACTIONS (3)
  - Premature labour [Unknown]
  - Exposure during pregnancy [Unknown]
  - Off label use [Unknown]

NARRATIVE: CASE EVENT DATE: 20140822
